FAERS Safety Report 8443751-4 (Version None)
Quarter: 2012Q2

REPORT INFORMATION
  Report Type: 
  Country: None (occurrence: None)
  Receive Date: 20120618
  Receipt Date: 20120608
  Transmission Date: 20120825
  Serious: Yes (Death)
  Sender: FDA-Public Use
  Company Number: US-ELI_LILLY_AND_COMPANY-US201206003053

PATIENT
  Sex: Male

DRUGS (1)
  1. ZYPREXA [Suspect]
     Dosage: 5MG, BID
     Route: 048

REACTIONS (1)
  - HEPATIC FAILURE [None]
